FAERS Safety Report 14966428 (Version 1)
Quarter: 2018Q2

REPORT INFORMATION
  Report Type: Spontaneous
  Country: US (occurrence: US)
  Receive Date: 20180604
  Receipt Date: 20180604
  Transmission Date: 20180711
  Serious: No
  Sender: FDA-Public Use
  Company Number: US-B.I. PHARMACEUTICALS,INC./RIDGEFIELD-2018-BI-028337

PATIENT
  Age: 55 Year
  Sex: Male
  Weight: 53 kg

DRUGS (7)
  1. COREG [Concomitant]
     Active Substance: CARVEDILOL
     Indication: BLOOD PRESSURE ABNORMAL
     Route: 048
     Dates: start: 201706
  2. LASIX [Concomitant]
     Active Substance: FUROSEMIDE
     Indication: PERIPHERAL SWELLING
     Route: 048
     Dates: start: 201706
  3. IRON [Concomitant]
     Active Substance: IRON
     Indication: ANAEMIA
     Route: 048
     Dates: start: 2017
  4. LASIX [Concomitant]
     Active Substance: FUROSEMIDE
     Indication: PERICARDIAL EFFUSION
  5. COMBIVENT RESPIMAT [Concomitant]
     Active Substance: ALBUTEROL SULFATE\IPRATROPIUM BROMIDE
     Indication: RESPIRATORY DISORDER
     Dosage: FORM STRENGTH: 20/100MCG; FORMULATION: INHALATION AEROSOL
     Route: 055
     Dates: start: 2017
  6. GILOTRIF [Suspect]
     Active Substance: AFATINIB
     Indication: LUNG NEOPLASM MALIGNANT
     Dosage: ADMINISTRATION CORRECT? YES ?ACTION(S) TAKEN WITH PRODUCT: DRUG WITHDRAWN
     Route: 048
     Dates: start: 20180509, end: 20180518
  7. MAGNESIUM [Concomitant]
     Active Substance: MAGNESIUM
     Indication: PRODUCT USED FOR UNKNOWN INDICATION
     Route: 048
     Dates: start: 2017

REACTIONS (4)
  - Weight decreased [Not Recovered/Not Resolved]
  - Tongue discomfort [Recovered/Resolved]
  - Pharyngeal oedema [Not Recovered/Not Resolved]
  - Gingival pain [Recovered/Resolved]

NARRATIVE: CASE EVENT DATE: 20180513
